FAERS Safety Report 5510438-7 (Version None)
Quarter: 2007Q4

REPORT INFORMATION
  Report Type: 
  Country: None (occurrence: None)
  Receive Date: 20071108
  Receipt Date: 20071029
  Transmission Date: 20080405
  Serious: Yes (Hospitalization)
  Sender: FDA-Public Use
  Company Number: GB-ELI_LILLY_AND_COMPANY-GB200710007312

PATIENT
  Age: 68 Year
  Sex: Female

DRUGS (5)
  1. CYMBALTA [Suspect]
     Dosage: 60 MG, UNK
     Dates: start: 20071001
  2. CYMBALTA [Suspect]
     Dosage: 90 MG, UNK
     Dates: start: 20071019
  3. DIAZEPAM [Concomitant]
  4. ZOPICLONE [Concomitant]
  5. DISULFIRAM [Concomitant]
     Indication: ALCOHOLISM

REACTIONS (2)
  - ALCOHOLISM [None]
  - TREMOR [None]
